FAERS Safety Report 8499959-5 (Version None)
Quarter: 2012Q3

REPORT INFORMATION
  Report Type: 
  Country: None (occurrence: None)
  Receive Date: 20120710
  Receipt Date: 20120627
  Transmission Date: 20120928
  Serious: Yes (Other)
  Sender: FDA-Public Use
  Company Number: US-ELI_LILLY_AND_COMPANY-US201204006063

PATIENT
  Sex: Female
  Weight: 74.376 kg

DRUGS (1)
  1. CYMBALTA [Suspect]
     Indication: PAIN
     Dosage: 60 MG, QD
     Route: 048
     Dates: start: 20111025, end: 20120401

REACTIONS (12)
  - ONYCHOMADESIS [None]
  - INTENTIONAL DRUG MISUSE [None]
  - OSTEOPENIA [None]
  - FOOT FRACTURE [None]
  - BLISTER [None]
  - URINARY RETENTION [None]
  - FOOT DEFORMITY [None]
  - SCAB [None]
  - ACCIDENT [None]
  - WOUND SECRETION [None]
  - LIMB INJURY [None]
  - IMPAIRED HEALING [None]
